FAERS Safety Report 16759067 (Version 1)
Quarter: 2019Q3

REPORT INFORMATION
  Report Type: Spontaneous
  Country: BR (occurrence: BR)
  Receive Date: 20190830
  Receipt Date: 20190830
  Transmission Date: 20191005
  Serious: Yes (Other)
  Sender: FDA-Public Use
  Company Number: PHHY2019BR201377

PATIENT
  Sex: Female

DRUGS (1)
  1. PATANOL [Suspect]
     Active Substance: OLOPATADINE HYDROCHLORIDE
     Indication: PRODUCT USED FOR UNKNOWN INDICATION
     Dosage: 1 GTT, QD
     Route: 047

REACTIONS (11)
  - Eye swelling [Unknown]
  - Eye discharge [Unknown]
  - Dizziness [Unknown]
  - Eye pruritus [Unknown]
  - Nasal dryness [Unknown]
  - Eye haemorrhage [Unknown]
  - Erythropsia [Unknown]
  - Photophobia [Unknown]
  - Vision blurred [Unknown]
  - Visual impairment [Unknown]
  - Ocular hyperaemia [Unknown]
